FAERS Safety Report 4837391-3 (Version None)
Quarter: 2005Q4

REPORT INFORMATION
  Report Type: 
  Country: None (occurrence: None)
  Receive Date: 20051123
  Receipt Date: 20051123
  Transmission Date: 20060501
  Serious: Yes (Disabling)
  Sender: FDA-Public Use
  Company Number: None

PATIENT
  Age: 67 Year
  Sex: Female
  Weight: 72.5755 kg

DRUGS (3)
  1. ANAGRELIDE [Suspect]
     Indication: THROMBOCYTHAEMIA
     Dosage: 14 CAPS DAILY 5+5+4
  2. SYNTHROID [Concomitant]
  3. PROCRIT [Concomitant]

REACTIONS (1)
  - RENAL FAILURE CHRONIC [None]
